FAERS Safety Report 13748316 (Version 2)
Quarter: 2017Q3

REPORT INFORMATION
  Report Type: Spontaneous
  Country: US (occurrence: US)
  Receive Date: 20170713
  Receipt Date: 20170803
  Transmission Date: 20171127
  Serious: No
  Sender: FDA-Public Use
  Company Number: US-PFIZER INC-2017304390

PATIENT
  Age: 74 Year
  Sex: Female
  Weight: 45 kg

DRUGS (4)
  1. GABAPENTIN. [Suspect]
     Active Substance: GABAPENTIN
     Indication: NEUROPATHY PERIPHERAL
     Dosage: 300 MG, 1X/DAY; ONE CAPSULE IN THE MORNING AND 2 CAPSULES AT BEDTIME
  2. ANORO ELLIPTA [Concomitant]
     Active Substance: UMECLIDINIUM BROMIDE\VILANTEROL TRIFENATATE
     Indication: BRONCHITIS
     Dosage: 62.5 UG, 1X/DAY (INHALE ONE PUFF INTO THE LUNGS EVERY DAY)
     Route: 055
  3. CHANTIX [Concomitant]
     Active Substance: VARENICLINE TARTRATE
     Indication: SMOKING CESSATION THERAPY
     Dosage: UNK
  4. VENTOLIN HFA [Concomitant]
     Active Substance: ALBUTEROL SULFATE
     Indication: DYSPNOEA
     Dosage: 90 UG, 2 PUFFS AS NEEDED

REACTIONS (2)
  - Product use in unapproved indication [Unknown]
  - Muscle spasms [Unknown]
